FAERS Safety Report 4775548-0 (Version None)
Quarter: 2005Q3

REPORT INFORMATION
  Report Type: 
  Country: None (occurrence: None)
  Receive Date: 20050920
  Receipt Date: 20050908
  Transmission Date: 20060218
  Serious: Yes (Hospitalization, Other)
  Sender: FDA-Public Use
  Company Number: 2005125360

PATIENT
  Sex: Male
  Weight: 81.6475 kg

DRUGS (3)
  1. CARDURA [Suspect]
     Indication: HYPERTENSION
  2. LOPRESSOR [Suspect]
     Indication: ILL-DEFINED DISORDER
  3. SECTRAL [Concomitant]

REACTIONS (9)
  - AMNESIA [None]
  - ARTERIAL OCCLUSIVE DISEASE [None]
  - CARDIAC ARREST [None]
  - CHOLECYSTITIS INFECTIVE [None]
  - COUGH [None]
  - DRUG HYPERSENSITIVITY [None]
  - HERNIA [None]
  - MYOCARDIAL INFARCTION [None]
  - PROSTATE CANCER [None]
